FAERS Safety Report 4771513-8 (Version None)
Quarter: 2005Q3

REPORT INFORMATION
  Report Type: 
  Country: None (occurrence: None)
  Receive Date: 20050913
  Receipt Date: 20050913
  Transmission Date: 20060218
  Serious: Yes (Hospitalization)
  Sender: FDA-Public Use
  Company Number: None

PATIENT
  Sex: Male
  Weight: 89.3586 kg

DRUGS (4)
  1. PACLITAXEL [Suspect]
     Indication: ADENOCARCINOMA
     Dosage: 40.60 MG IV
     Route: 042
     Dates: start: 20050725, end: 20050729
  2. PACLITAXEL [Suspect]
     Indication: SWEAT GLAND DISORDER
     Dosage: 40.60 MG IV
     Route: 042
     Dates: start: 20050725, end: 20050729
  3. CISPLATIN [Suspect]
     Indication: ADENOCARCINOMA
     Dosage: 30.45 MG IV
     Route: 042
     Dates: start: 20050725, end: 20050729
  4. CISPLATIN [Suspect]
     Indication: SWEAT GLAND DISORDER
     Dosage: 30.45 MG IV
     Route: 042
     Dates: start: 20050725, end: 20050729

REACTIONS (1)
  - HOSPITALISATION [None]
